FAERS Safety Report 19407058 (Version 2)
Quarter: 2021Q2

REPORT INFORMATION
  Report Type: Spontaneous
  Country: JP (occurrence: JP)
  Receive Date: 20210611
  Receipt Date: 20210621
  Transmission Date: 20210717
  Serious: Yes (Disabling)
  Sender: FDA-Public Use
  Company Number: JP-CELGENEUS-JPN-20200900362

PATIENT
  Age: 59 Year
  Sex: Female
  Weight: 48.5 kg

DRUGS (12)
  1. CALONAL [Concomitant]
     Active Substance: ACETAMINOPHEN
     Indication: PLASMA CELL MYELOMA
     Dosage: 1600 MILLIGRAM
     Route: 048
     Dates: start: 20200713, end: 20200809
  2. LANSOPRAZOLE. [Suspect]
     Active Substance: LANSOPRAZOLE
     Indication: PLASMA CELL MYELOMA
     Dosage: 15 MILLIGRAM
     Route: 048
     Dates: start: 20200716, end: 20200806
  3. REVLIMID [Suspect]
     Active Substance: LENALIDOMIDE
     Indication: PLASMA CELL MYELOMA
     Route: 048
     Dates: start: 20200720, end: 2020
  4. LENADEX [Suspect]
     Active Substance: DEXAMETHASONE ACETATE
     Indication: PLASMA CELL MYELOMA
     Dosage: HIGH?DOSE
     Route: 048
     Dates: start: 20200713, end: 20200714
  5. BAYASPIRIN [Suspect]
     Active Substance: ASPIRIN
     Indication: PLASMA CELL MYELOMA
     Dosage: 100 MILLIGRAM
     Route: 048
     Dates: start: 20200723, end: 20200806
  6. VELCADE [Concomitant]
     Active Substance: BORTEZOMIB
     Indication: PLASMA CELL MYELOMA
     Route: 058
     Dates: start: 20200720, end: 20200817
  7. VELCADE [Concomitant]
     Active Substance: BORTEZOMIB
     Route: 058
  8. DAIPHEN [Suspect]
     Active Substance: SULFAMETHOXAZOLE\TRIMETHOPRIM
     Indication: PLASMA CELL MYELOMA
     Dosage: 0.5 TABLET
     Route: 048
     Dates: start: 20200723, end: 20200730
  9. FEBURIC [Concomitant]
     Active Substance: FEBUXOSTAT
     Indication: PLASMA CELL MYELOMA
     Dosage: 60 MILLIGRAM
     Route: 048
     Dates: start: 20200713, end: 20200729
  10. DARBEPOETIN [Concomitant]
     Active Substance: DARBEPOETIN ALFA
     Indication: NEPHROGENIC ANAEMIA
     Dosage: UNKNOWN
     Route: 065
  11. LENADEX [Suspect]
     Active Substance: DEXAMETHASONE ACETATE
     Route: 048
     Dates: start: 20200720
  12. REVLIMID [Suspect]
     Active Substance: LENALIDOMIDE
     Dosage: 10 MILLIGRAM
     Route: 048
     Dates: start: 2020, end: 20200815

REACTIONS (2)
  - Cough [Unknown]
  - Tubulointerstitial nephritis [Recovering/Resolving]

NARRATIVE: CASE EVENT DATE: 20200713
